FAERS Safety Report 8584457-0 (Version None)
Quarter: 2012Q3

REPORT INFORMATION
  Report Type: 
  Country: None (occurrence: None)
  Receive Date: 20120730
  Receipt Date: 20120718
  Transmission Date: 20120928
  Serious: Yes (Hospitalization)
  Sender: FDA-Public Use
  Company Number: DKLU1083297

PATIENT
  Age: 9 Month
  Sex: Male

DRUGS (3)
  1. TOPIRAMATE [Concomitant]
  2. VALIUM [Concomitant]
  3. SABRIL [Suspect]
     Indication: INFANTILE SPASMS
     Dosage: 3 ML MILLILITRE(S), 2 IN 1 D, ORAL 5 ML MILLILITRE(S), 2 IN 1 D, ORAL
     Route: 048
     Dates: start: 20120606

REACTIONS (2)
  - DISEASE PROGRESSION [None]
  - MITOCHONDRIAL ENCEPHALOMYOPATHY [None]
